FAERS Safety Report 5313793-6 (Version None)
Quarter: 2007Q2

REPORT INFORMATION
  Report Type: 
  Country: None (occurrence: None)
  Receive Date: 20070501
  Receipt Date: 20070427
  Transmission Date: 20071010
  Serious: No
  Sender: FDA-Public Use
  Company Number: US-BAXTER-2007BH003962

PATIENT
  Age: 35 Year
  Sex: Female

DRUGS (5)
  1. PHENERGAN HCL [Suspect]
     Indication: NAUSEA
     Route: 042
     Dates: start: 20070427, end: 20070427
  2. PHENERGAN HCL [Suspect]
     Indication: VOMITING
     Route: 042
     Dates: start: 20070427, end: 20070427
  3. GEMZAR [Concomitant]
     Indication: BREAST CANCER
     Route: 042
     Dates: start: 20070420
  4. TAXOL [Concomitant]
     Indication: BREAST CANCER
     Route: 042
     Dates: start: 20070420
  5. COMPAZINE [Concomitant]
     Indication: DRUG USE FOR UNKNOWN INDICATION
     Dosage: DOSE UNIT:UNKNOWN
     Route: 054
     Dates: start: 20070426

REACTIONS (3)
  - CHILLS [None]
  - DYSPNOEA [None]
  - MUSCLE TWITCHING [None]
